FAERS Safety Report 17639191 (Version 2)
Quarter: 2020Q2

REPORT INFORMATION
  Report Type: Spontaneous
  Country: ID (occurrence: ID)
  Receive Date: 20200407
  Receipt Date: 20200409
  Transmission Date: 20200713
  Serious: Yes (Other)
  Sender: FDA-Public Use
  Company Number: ID-ENDO PHARMACEUTICALS INC-2020-002938

PATIENT
  Age: 35 Year
  Sex: Male

DRUGS (2)
  1. AVEED [Suspect]
     Active Substance: TESTOSTERONE UNDECANOATE
     Indication: PRODUCT USED FOR UNKNOWN INDICATION
     Dosage: UNK UNKNOWN, UNKNOWN;
     Route: 065
     Dates: start: 202001
  2. AVEED [Suspect]
     Active Substance: TESTOSTERONE UNDECANOATE
     Dosage: UNK UNKNOWN, UNKNOWN; SECOND DOSE
     Route: 065
     Dates: start: 202002

REACTIONS (1)
  - Testicular atrophy [Unknown]

NARRATIVE: CASE EVENT DATE: 202003
